FAERS Safety Report 7101237-3 (Version None)
Quarter: 2010Q4

REPORT INFORMATION
  Report Type: 
  Country: None (occurrence: None)
  Receive Date: 20101115
  Receipt Date: 20101103
  Transmission Date: 20110411
  Serious: Yes (Other)
  Sender: FDA-Public Use
  Company Number: TW-JNJFOC-20101102346

PATIENT
  Age: 51 Year
  Sex: Male

DRUGS (1)
  1. HALDOL [Suspect]
     Indication: ILL-DEFINED DISORDER
     Route: 065

REACTIONS (1)
  - RHABDOMYOLYSIS [None]
